FAERS Safety Report 4968741-5 (Version None)
Quarter: 2006Q2

REPORT INFORMATION
  Report Type: 
  Country: None (occurrence: None)
  Receive Date: 20060405
  Receipt Date: 20060314
  Transmission Date: 20061013
  Serious: Yes (Hospitalization)
  Sender: FDA-Public Use
  Company Number: GBT040901632

PATIENT
  Age: 54 Year
  Sex: Female
  Weight: 79 kg

DRUGS (6)
  1. GEMCITABINE HYDROCHLORIDE (GEMCITABINE HYDROCHLORIDE) VIAL [Suspect]
     Indication: BREAST CANCER
     Dosage: 2310 MG
     Dates: start: 20040615
  2. PACLITAXEL [Suspect]
     Indication: BREAST CANCER
     Dosage: 324 MG, OTHER
     Dates: start: 20040615
  3. EPIRUBICIN [Suspect]
     Indication: BREAST CANCER
     Dosage: 165 MG, OTHER, INTRAVENOUS
     Route: 042
     Dates: start: 20040323, end: 20040525
  4. CYCLOPHOSPHAMIDE [Suspect]
     Indication: BREAST CANCER
     Dosage: 1110 MG, INTRAVENOUS
     Route: 042
     Dates: start: 20040323, end: 20040525
  5. ADCAL-D3 [Concomitant]
  6. DEXAMETHASONE [Concomitant]

REACTIONS (14)
  - ABDOMINAL PAIN [None]
  - ASPARTATE AMINOTRANSFERASE INCREASED [None]
  - DIARRHOEA [None]
  - DIZZINESS [None]
  - DYSPNOEA AT REST [None]
  - GAMMA-GLUTAMYLTRANSFERASE INCREASED [None]
  - HEADACHE [None]
  - INFECTION [None]
  - LIVER FUNCTION TEST ABNORMAL [None]
  - NEUTROPENIA [None]
  - PAIN [None]
  - PYREXIA [None]
  - VISUAL DISTURBANCE [None]
  - VOMITING [None]
